FAERS Safety Report 9178606 (Version 3)
Quarter: 2013Q2

REPORT INFORMATION
  Report Type: Report from Study
  Country: FR (occurrence: FR)
  Receive Date: 20130321
  Receipt Date: 20130530
  Transmission Date: 20140414
  Serious: Yes (Hospitalization)
  Sender: FDA-Public Use
  Company Number: FR-ROCHE-1204784

PATIENT
  Age: 72 Year
  Sex: Male
  Weight: 84 kg

DRUGS (9)
  1. RIBAVIRIN [Suspect]
     Indication: CHRONIC HEPATITIS C
     Route: 048
     Dates: start: 20130114, end: 20130325
  2. BOCEPREVIR [Suspect]
     Indication: CHRONIC HEPATITIS C
     Route: 048
     Dates: start: 20130211
  3. PEGINTERFERON ALFA-2B [Suspect]
     Indication: CHRONIC HEPATITIS C
     Route: 058
     Dates: start: 20130118
  4. INEXIUM [Concomitant]
     Route: 048
  5. UROREC [Concomitant]
     Route: 048
     Dates: start: 2011
  6. LIPANTHYL [Concomitant]
     Indication: HYPERLIPIDAEMIA
     Route: 048
  7. PROPRANOLOL [Concomitant]
     Indication: VARICES OESOPHAGEAL
     Route: 048
  8. SEROPRAM (FRANCE) [Concomitant]
     Indication: DEPRESSION
     Route: 065
  9. NORDAZ [Concomitant]
     Route: 065

REACTIONS (1)
  - Pancytopenia [Recovered/Resolved]
